FAERS Safety Report 5248429-6 (Version None)
Quarter: 2007Q1

REPORT INFORMATION
  Report Type: 
  Country: None (occurrence: None)
  Receive Date: 20070222
  Receipt Date: 20070207
  Transmission Date: 20070707
  Serious: No
  Sender: FDA-Public Use
  Company Number: TPA2007A00057

PATIENT
  Age: 59 Year
  Sex: Female
  Weight: 38.5557 kg

DRUGS (8)
  1. ROZEREM [Suspect]
     Indication: INSOMNIA
     Dosage: SEE IMAGE
     Route: 048
     Dates: end: 20070108
  2. ROZEREM [Suspect]
     Indication: INSOMNIA
     Dosage: SEE IMAGE
     Route: 048
     Dates: start: 20061201
  3. SEROQUEL [Concomitant]
  4. KLONOPIN [Concomitant]
  5. LITHIUM CARBONATE [Concomitant]
  6. DEPAKOTE [Concomitant]
  7. IMITREX [Concomitant]
  8. VICODIN [Concomitant]

REACTIONS (6)
  - EYE PAIN [None]
  - FATIGUE [None]
  - MIDDLE INSOMNIA [None]
  - MIGRAINE [None]
  - SLEEP DISORDER [None]
  - SOMNOLENCE [None]
